FAERS Safety Report 8539156 (Version 4)
Quarter: 2013Q1

REPORT INFORMATION
  Report Type: Spontaneous
  Country: US (occurrence: US)
  Receive Date: 20120501
  Receipt Date: 20130306
  Transmission Date: 20140127
  Serious: Yes (Other)
  Sender: FDA-Public Use
  Company Number: CHPA2010US13425

PATIENT
  Age: 55 Year
  Sex: Female
  Weight: 65.76 kg

DRUGS (5)
  1. VOLTAREN GEL [Suspect]
     Indication: BACK PAIN
     Dosage: 2 G, QD
     Route: 061
  2. VOLTAREN GEL [Suspect]
     Dosage: 2 G, QD
     Route: 061
  3. VOLTAREN GEL [Suspect]
     Dosage: UNK, ON AND OFF
     Route: 061
  4. WARFARIN [Suspect]
     Dosage: UNK, UNK
  5. BAYER ASPIRIN [Suspect]
     Dosage: 81 MG, UNK
     Dates: start: 201204

REACTIONS (5)
  - Vaginal haemorrhage [Recovered/Resolved]
  - International normalised ratio increased [Recovered/Resolved]
  - Off label use [Unknown]
  - Drug administered at inappropriate site [Unknown]
  - Wrong technique in drug usage process [Unknown]
